FAERS Safety Report 18196389 (Version 1)
Quarter: 2020Q3

REPORT INFORMATION
  Report Type: Spontaneous
  Country: US (occurrence: US)
  Receive Date: 20200825
  Receipt Date: 20200825
  Transmission Date: 20201103
  Serious: No
  Sender: FDA-Public Use
  Company Number: None

PATIENT
  Age: 70 Year
  Sex: Female
  Weight: 91.35 kg

DRUGS (18)
  1. LATANOPROST. [Concomitant]
     Active Substance: LATANOPROST
  2. SEVELAMER [Concomitant]
     Active Substance: SEVELAMER
  3. NINLARO [Suspect]
     Active Substance: IXAZOMIB CITRATE
     Indication: PLASMA CELL MYELOMA
     Route: 048
     Dates: start: 20200730
  4. COMBIGAN [Concomitant]
     Active Substance: BRIMONIDINE TARTRATE\TIMOLOL MALEATE
  5. DEXAMETHASONE. [Concomitant]
     Active Substance: DEXAMETHASONE
  6. VITAMIN D [Concomitant]
     Active Substance: VITAMIN D NOS
  7. FLEXERIL [Concomitant]
     Active Substance: CYCLOBENZAPRINE HYDROCHLORIDE
  8. REVLIMID [Concomitant]
     Active Substance: LENALIDOMIDE
  9. DORZOLAMIDE [Concomitant]
     Active Substance: DORZOLAMIDE
  10. ASPIRIN. [Concomitant]
     Active Substance: ASPIRIN
  11. LIPITOR [Concomitant]
     Active Substance: ATORVASTATIN CALCIUM
  12. AMMONIUM LACTATE. [Concomitant]
     Active Substance: AMMONIUM LACTATE
  13. LYRICA [Concomitant]
     Active Substance: PREGABALIN
  14. TIMOLOL. [Concomitant]
     Active Substance: TIMOLOL
  15. TRAMADOL. [Concomitant]
     Active Substance: TRAMADOL
  16. TYLENOL [Concomitant]
     Active Substance: ACETAMINOPHEN
  17. BRIMONIDINE [Concomitant]
     Active Substance: BRIMONIDINE TARTRATE
  18. ZOFRAN [Concomitant]
     Active Substance: ONDANSETRON HYDROCHLORIDE

REACTIONS (1)
  - Eye pain [None]

NARRATIVE: CASE EVENT DATE: 20200825
